FAERS Safety Report 9263076 (Version 1)
Quarter: 2013Q2

REPORT INFORMATION
  Report Type: Spontaneous
  Country: US (occurrence: None)
  Receive Date: 20130426
  Receipt Date: 20130426
  Transmission Date: 20140414
  Serious: Yes (Other)
  Sender: FDA-Public Use
  Company Number: None

PATIENT
  Age: 46 Year
  Sex: Female
  Weight: 90.72 kg

DRUGS (1)
  1. LEVOTHYROXIN [Suspect]
     Dosage: ONE
     Dates: start: 20120411, end: 20130314

REACTIONS (4)
  - Arthralgia [None]
  - Headache [None]
  - Fatigue [None]
  - Product quality issue [None]
